FAERS Safety Report 9270866 (Version 1)
Quarter: 2013Q2

REPORT INFORMATION
  Report Type: Spontaneous
  Country: US (occurrence: US)
  Receive Date: 20130503
  Receipt Date: 20130503
  Transmission Date: 20140414
  Serious: Yes (Hospitalization, Other)
  Sender: FDA-Public Use
  Company Number: US-ASTRAZENECA-2013SE29439

PATIENT
  Age: 62 Year
  Sex: Female
  Weight: 62.1 kg

DRUGS (6)
  1. CRESTOR [Suspect]
     Indication: BLOOD CHOLESTEROL INCREASED
     Route: 048
     Dates: start: 2009, end: 20130214
  2. SPIROLACTONE [Concomitant]
     Indication: HYPERTENSION
     Route: 048
  3. BISOPROLOL/HYDROCHLOROTHIAZIDE [Concomitant]
     Indication: HYPERTENSION
     Dosage: 2.5 MG / 6.25 MG, DAILY
     Route: 048
  4. METFORMIN [Concomitant]
     Indication: GLUCOSE TOLERANCE IMPAIRED
     Route: 048
     Dates: start: 2011
  5. ASPIRIN [Concomitant]
     Route: 048
  6. NITROGLYCERIN [Concomitant]
     Indication: ANGINA PECTORIS
     Dosage: PRN
     Route: 050
     Dates: start: 1985

REACTIONS (10)
  - Fall [Recovered/Resolved]
  - Bradycardia [Recovered/Resolved]
  - Coronary artery occlusion [Unknown]
  - Limb injury [Unknown]
  - Rotator cuff syndrome [Unknown]
  - Balance disorder [Not Recovered/Not Resolved]
  - Feeling drunk [Not Recovered/Not Resolved]
  - Condition aggravated [Unknown]
  - Blood creatine phosphokinase increased [Recovering/Resolving]
  - Muscular weakness [Not Recovered/Not Resolved]
